FAERS Safety Report 5320931-8 (Version None)
Quarter: 2007Q2

REPORT INFORMATION
  Report Type: 
  Country: None (occurrence: None)
  Receive Date: 20070509
  Receipt Date: 20070430
  Transmission Date: 20071010
  Serious: Yes (Hospitalization)
  Sender: FDA-Public Use
  Company Number: RU-ABBOTT-07P-251-0366611-00

PATIENT
  Age: 32 Year
  Sex: Female

DRUGS (3)
  1. DEPAKENE [Suspect]
     Indication: EPILEPSY
     Route: 048
     Dates: start: 20020101
  2. FOLIC ACID [Concomitant]
     Indication: VITAMIN SUPPLEMENTATION
     Route: 048
     Dates: start: 20060101, end: 20070201
  3. VINPOCETINE [Concomitant]
     Indication: CARDIOVASCULAR EVENT PROPHYLAXIS
     Route: 048

REACTIONS (10)
  - CAESAREAN SECTION [None]
  - CONGENITAL ANOMALY [None]
  - CONGENITAL CENTRAL NERVOUS SYSTEM ANOMALY [None]
  - CONVULSION [None]
  - DRUG INEFFECTIVE [None]
  - HOSPITALISATION [None]
  - INTRAUTERINE INFECTION [None]
  - NEONATAL RESPIRATORY DISTRESS SYNDROME [None]
  - PARTIAL SEIZURES [None]
  - PRE-ECLAMPSIA [None]
